FAERS Safety Report 8784731 (Version 1)
Quarter: 2012Q4

REPORT INFORMATION
  Report Type: Spontaneous
  Country: US (occurrence: None)
  Receive Date: 20120907
  Receipt Date: 20120907
  Transmission Date: 20130627
  Serious: Yes (Other)
  Sender: FDA-Public Use
  Company Number: None

PATIENT
  Age: 43 Year
  Sex: Female
  Weight: 81.65 kg

DRUGS (1)
  1. DOXYCYCLINE HYDROCHLORIDE [Suspect]
     Indication: TICK BITE
     Dosage: 100 mg BID x 3 weeks BID po
     Route: 048
     Dates: start: 20120822, end: 20120905

REACTIONS (7)
  - Drug ineffective [None]
  - Abdominal pain upper [None]
  - Nausea [None]
  - Vomiting [None]
  - Diarrhoea [None]
  - Rash [None]
  - Eructation [None]
